FAERS Safety Report 20710447 (Version 3)
Quarter: 2022Q2

REPORT INFORMATION
  Report Type: Report from Study
  Country: FR (occurrence: FR)
  Receive Date: 20220414
  Receipt Date: 20220603
  Transmission Date: 20220721
  Serious: Yes (Hospitalization, Disabling, Other)
  Sender: FDA-Public Use
  Company Number: FR-ABBVIE-22K-056-4357802-00

PATIENT
  Age: 74 Year
  Sex: Female

DRUGS (2)
  1. CARBIDOPA\LEVODOPA [Suspect]
     Active Substance: CARBIDOPA\LEVODOPA
     Indication: Parkinson^s disease
     Route: 050
     Dates: start: 20220316, end: 2022
  2. CARBIDOPA\LEVODOPA [Suspect]
     Active Substance: CARBIDOPA\LEVODOPA
     Dosage: DOSAGE WAS INCREASED
     Route: 050
     Dates: start: 2022

REACTIONS (12)
  - Catatonia [Unknown]
  - Fall [Unknown]
  - Femoral neck fracture [Unknown]
  - Cognitive disorder [Unknown]
  - Feeding disorder [Unknown]
  - Fluid intake reduced [Unknown]
  - Intentional medical device removal by patient [Unknown]
  - Pain [Unknown]
  - On and off phenomenon [Unknown]
  - Decreased appetite [Unknown]
  - Depression [Unknown]
  - Hallucination [Unknown]

NARRATIVE: CASE EVENT DATE: 20220101
